FAERS Safety Report 15152670 (Version 1)
Quarter: 2018Q3

REPORT INFORMATION
  Report Type: Spontaneous
  Country: US (occurrence: US)
  Receive Date: 20180717
  Receipt Date: 20180717
  Transmission Date: 20181010
  Serious: Yes (Hospitalization)
  Sender: FDA-Public Use
  Company Number: US-BEH-2018092733

PATIENT
  Age: 67 Year
  Sex: Female
  Weight: 52.15 kg

DRUGS (43)
  1. PROCHLORPERAZINE. [Concomitant]
     Active Substance: PROCHLORPERAZINE
  2. ALENDRONATE [Concomitant]
     Active Substance: ALENDRONATE SODIUM
  3. OMEGA 3?6?9                        /01333901/ [Concomitant]
     Active Substance: OMEGA-3 FATTY ACIDS
  4. POTASSIUM [Concomitant]
     Active Substance: POTASSIUM
  5. HIZENTRA [Suspect]
     Active Substance: HUMAN IMMUNOGLOBULIN G
     Indication: PULMONARY ARTERIAL HYPERTENSION
     Dosage: 15 G, QW
     Route: 058
     Dates: start: 20170614
  6. EPINEPHRINE. [Concomitant]
     Active Substance: EPINEPHRINE
  7. AZITHROMYCIN ANHYDROUS. [Concomitant]
     Active Substance: AZITHROMYCIN ANHYDROUS
  8. NEULASTA [Concomitant]
     Active Substance: PEGFILGRASTIM
  9. PROMETHAZINE [Concomitant]
     Active Substance: PROMETHAZINE\PROMETHAZINE HYDROCHLORIDE
  10. LASIX [Concomitant]
     Active Substance: FUROSEMIDE
  11. DIPHENHYDRAMINE. [Concomitant]
     Active Substance: DIPHENHYDRAMINE
  12. ONDANSETRON [Concomitant]
     Active Substance: ONDANSETRON
  13. AZELASTINE. [Concomitant]
     Active Substance: AZELASTINE HYDROCHLORIDE
  14. NASONEX [Concomitant]
     Active Substance: MOMETASONE FUROATE
  15. OXYBUTYNIN. [Concomitant]
     Active Substance: OXYBUTYNIN CHLORIDE
  16. METOPROLOL SUCCINATE. [Concomitant]
     Active Substance: METOPROLOL SUCCINATE
  17. VITAMIN D3 [Concomitant]
     Active Substance: CHOLECALCIFEROL
  18. AMOXICILLIN AND CLAVULANATE POTASSIUM [Concomitant]
     Active Substance: AMOXICILLIN\CLAVULANATE POTASSIUM
  19. SUCRALFATE. [Concomitant]
     Active Substance: SUCRALFATE
  20. CIPROFLOXACIN. [Concomitant]
     Active Substance: CIPROFLOXACIN
  21. KRILL OIL [Concomitant]
     Active Substance: DIETARY SUPPLEMENT
  22. ACETAMINOPHEN. [Concomitant]
     Active Substance: ACETAMINOPHEN
  23. PRIMIDONE. [Concomitant]
     Active Substance: PRIMIDONE
  24. SENOKOT [Concomitant]
     Active Substance: SENNOSIDES
  25. PAROXETINE. [Concomitant]
     Active Substance: PAROXETINE
  26. RIOCIGUAT. [Concomitant]
     Active Substance: RIOCIGUAT
  27. LYRICA [Concomitant]
     Active Substance: PREGABALIN
  28. MORPHINE SULFATE. [Concomitant]
     Active Substance: MORPHINE SULFATE
  29. DEXAMETHASONE. [Concomitant]
     Active Substance: DEXAMETHASONE
  30. SYMBICORT [Concomitant]
     Active Substance: BUDESONIDE\FORMOTEROL FUMARATE DIHYDRATE
  31. ASPIRIN. [Concomitant]
     Active Substance: ASPIRIN
  32. LIDOCAINE. [Concomitant]
     Active Substance: LIDOCAINE
  33. LMX                                /00033401/ [Concomitant]
  34. PREDNISONE. [Concomitant]
     Active Substance: PREDNISONE
  35. MULTIVITAMIN                       /00097801/ [Concomitant]
     Active Substance: VITAMINS
  36. PLAVIX [Concomitant]
     Active Substance: CLOPIDOGREL BISULFATE
  37. CEPHALEXIN                         /00145501/ [Concomitant]
     Active Substance: CEPHALEXIN
  38. OXYCODONE [Concomitant]
     Active Substance: OXYCODONE
  39. IRON [Concomitant]
     Active Substance: IRON
  40. GLIPIZIDE. [Concomitant]
     Active Substance: GLIPIZIDE
  41. VITAMIN E                          /00110501/ [Concomitant]
     Active Substance: TOCOPHEROL
  42. VITAMIN B6 [Concomitant]
     Active Substance: PYRIDOXINE HYDROCHLORIDE
  43. DEXILANT [Concomitant]
     Active Substance: DEXLANSOPRAZOLE

REACTIONS (2)
  - Dyspnoea [Unknown]
  - Vital functions abnormal [Unknown]
